FAERS Safety Report 6594762-5 (Version None)
Quarter: 2010Q1

REPORT INFORMATION
  Report Type: 
  Country: None (occurrence: None)
  Receive Date: 20100222
  Receipt Date: 20100218
  Transmission Date: 20100710
  Serious: Yes (Life-Threatening)
  Sender: FDA-Public Use
  Company Number: DE-ASTRAZENECA-2010SE07250

PATIENT
  Age: 82 Year
  Sex: Female

DRUGS (7)
  1. SEROQUEL [Suspect]
     Route: 048
     Dates: start: 20090930, end: 20091025
  2. SEROQUEL [Suspect]
     Route: 048
     Dates: start: 20091026, end: 20091103
  3. SEROQUEL [Suspect]
     Route: 048
     Dates: start: 20091104
  4. ARICEPT [Suspect]
     Route: 048
     Dates: start: 20091022, end: 20091028
  5. REMERGIL [Suspect]
     Route: 048
     Dates: start: 20090930, end: 20091026
  6. PANTOZOL [Concomitant]
     Route: 048
     Dates: start: 20091002
  7. IBUPROFEN TABLETS [Concomitant]
     Route: 048
     Dates: start: 20091002, end: 20091124

REACTIONS (4)
  - BLOOD PRESSURE INCREASED [None]
  - CARDIAC ARREST [None]
  - CONVULSION [None]
  - RESPIRATORY ARREST [None]
